FAERS Safety Report 13798093 (Version 3)
Quarter: 2018Q2

REPORT INFORMATION
  Report Type: Spontaneous
  Country: US (occurrence: US)
  Receive Date: 20170727
  Receipt Date: 20180503
  Transmission Date: 20180711
  Serious: No
  Sender: FDA-Public Use
  Company Number: US-PFIZER INC-2017322220

PATIENT
  Age: 25 Year
  Sex: Female

DRUGS (3)
  1. IBRANCE [Suspect]
     Active Substance: PALBOCICLIB
     Dosage: 100 MG, UNK
     Dates: start: 20170712
  2. IBRANCE [Suspect]
     Active Substance: PALBOCICLIB
     Dosage: 100 MG, CYCLIC (ONCE A DAY FOR 21 DAYS)
     Dates: start: 20170714
  3. IBRANCE [Suspect]
     Active Substance: PALBOCICLIB
     Dosage: 100 MG, CYCLIC (1 CAP QD X2LD THEN 7D OFF)
     Route: 048
     Dates: start: 20170713

REACTIONS (4)
  - Diplopia [Unknown]
  - Back pain [Unknown]
  - Neoplasm progression [Unknown]
  - Asthenia [Unknown]

NARRATIVE: CASE EVENT DATE: 201707
